FAERS Safety Report 8638578 (Version 3)
Quarter: 2013Q3

REPORT INFORMATION
  Report Type: Report from Study
  Country: CA (occurrence: CA)
  Receive Date: 20120627
  Receipt Date: 20130725
  Transmission Date: 20140515
  Serious: Yes (Hospitalization)
  Sender: FDA-Public Use
  Company Number: CA-GLAXOSMITHKLINE-A0980368B

PATIENT
  Age: 75 Year
  Sex: Male
  Weight: 77.4 kg

DRUGS (7)
  1. OFATUMUMAB [Suspect]
     Indication: CHRONIC LYMPHOCYTIC LEUKAEMIA
     Dosage: 2000MG WEEKLY
     Route: 042
     Dates: start: 20120504
  2. GSK2110183 [Suspect]
     Indication: CHRONIC LYMPHOCYTIC LEUKAEMIA
     Dosage: 125MG PER DAY
     Route: 048
     Dates: start: 20120424
  3. LIPITOR [Concomitant]
  4. FLUOROURACIL [Concomitant]
  5. SERTRALINE HCL [Concomitant]
  6. PRADAXA [Concomitant]
  7. CARDIZEM [Concomitant]

REACTIONS (1)
  - Bronchitis [Recovered/Resolved]
